FAERS Safety Report 10652476 (Version 2)
Quarter: 2015Q1

REPORT INFORMATION
  Report Type: Spontaneous
  Country: DE (occurrence: DE)
  Receive Date: 20141215
  Receipt Date: 20150209
  Transmission Date: 20150720
  Serious: Yes (Death, Hospitalization, Other)
  Sender: FDA-Public Use
  Company Number: DE-ALEXION PHARMACEUTICALS INC.-A201404691

PATIENT

DRUGS (3)
  1. BUDESONIDE. [Concomitant]
     Active Substance: BUDESONIDE
     Indication: ACUTE GRAFT VERSUS HOST DISEASE
     Dosage: 3X320 ?G, QD
     Route: 048
  2. SOLIRIS [Suspect]
     Active Substance: ECULIZUMAB
     Indication: HAEMOLYTIC URAEMIC SYNDROME
     Dosage: 900 MG, UNK
     Route: 042
     Dates: start: 201411
  3. PREDNISOLONE. [Concomitant]
     Active Substance: PREDNISOLONE
     Indication: ACUTE GRAFT VERSUS HOST DISEASE
     Dosage: 25 MG, QD
     Route: 048

REACTIONS (2)
  - Sepsis [Fatal]
  - Hypotension [Fatal]

NARRATIVE: CASE EVENT DATE: 20141124
